FAERS Safety Report 8328627-5 (Version None)
Quarter: 2012Q2

REPORT INFORMATION
  Report Type: 
  Country: None (occurrence: None)
  Receive Date: 20120502
  Receipt Date: 20100805
  Transmission Date: 20120825
  Serious: No
  Sender: FDA-Public Use
  Company Number: US-TEVA-2010004155

PATIENT
  Sex: Female
  Weight: 68.1 kg

DRUGS (1)
  1. NUVIGIL [Suspect]
     Indication: ATTENTION DEFICIT/HYPERACTIVITY DISORDER
     Route: 048
     Dates: start: 20100601, end: 20100801

REACTIONS (4)
  - INTENTIONAL DRUG MISUSE [None]
  - NAUSEA [None]
  - DIZZINESS [None]
  - INITIAL INSOMNIA [None]
